FAERS Safety Report 8131006-7 (Version None)
Quarter: 2012Q1

REPORT INFORMATION
  Report Type: 
  Country: None (occurrence: None)
  Receive Date: 20120208
  Receipt Date: 20120208
  Transmission Date: 20120608
  Serious: No
  Sender: FDA-Public Use
  Company Number: None

PATIENT
  Sex: Male

DRUGS (1)
  1. REVATIO [Suspect]
     Dosage: 20 MG PO TID
     Route: 048
     Dates: start: 20111102

REACTIONS (4)
  - FEELING ABNORMAL [None]
  - DIZZINESS [None]
  - DISORIENTATION [None]
  - SYNCOPE [None]
